FAERS Safety Report 11780796 (Version 2)
Quarter: 2015Q4

REPORT INFORMATION
  Report Type: Report from Study
  Country: JP (occurrence: JP)
  Receive Date: 20151126
  Receipt Date: 20151231
  Transmission Date: 20160305
  Serious: No
  Sender: FDA-Public Use
  Company Number: JP-BRISTOL-MYERS SQUIBB COMPANY-BMS-2015-080274

PATIENT
  Age: 65 Year
  Sex: Female
  Weight: 46.5 kg

DRUGS (2)
  1. DAKLINZA [Suspect]
     Active Substance: DACLATASVIR
     Indication: HEPATIC CIRRHOSIS
     Dosage: 60 MG, QD
     Route: 048
     Dates: start: 20150629, end: 20150809
  2. SUNVEPRA [Suspect]
     Active Substance: ASUNAPREVIR
     Indication: HEPATIC CIRRHOSIS
     Dosage: 100 MG, BID
     Route: 048
     Dates: start: 20150629, end: 20150809

REACTIONS (1)
  - Drug eruption [Recovered/Resolved]

NARRATIVE: CASE EVENT DATE: 20150727
